FAERS Safety Report 6376521-1 (Version None)
Quarter: 2009Q3

REPORT INFORMATION
  Report Type: 
  Country: None (occurrence: None)
  Receive Date: 20090925
  Receipt Date: 20090917
  Transmission Date: 20100115
  Serious: Yes (Other)
  Sender: FDA-Public Use
  Company Number: US-PFIZER INC-2009249078

PATIENT
  Sex: Female
  Weight: 54 kg

DRUGS (3)
  1. AROMASIN [Suspect]
     Indication: BREAST CANCER METASTATIC
     Dosage: 25 MG, 1X/DAY
     Route: 048
     Dates: start: 20090505, end: 20090727
  2. HYDROCODONE [Concomitant]
     Dosage: UNK
     Route: 048
  3. ZOMETA [Concomitant]
     Route: 042

REACTIONS (11)
  - ABDOMINAL PAIN [None]
  - ALOPECIA [None]
  - ASTHENIA [None]
  - BACK PAIN [None]
  - CONSTIPATION [None]
  - FALL [None]
  - FEELING HOT [None]
  - GASTROINTESTINAL PAIN [None]
  - MADAROSIS [None]
  - PAIN [None]
  - REGURGITATION [None]
